FAERS Safety Report 5916820-8 (Version None)
Quarter: 2008Q3

REPORT INFORMATION
  Report Type: 
  Country: None (occurrence: None)
  Receive Date: 20080909
  Receipt Date: 20071011
  Transmission Date: 20090109
  Serious: Yes (Hospitalization)
  Sender: FDA-Public Use
  Company Number: 163-20785-07051070

PATIENT
  Age: 74 Year
  Sex: Male

DRUGS (1)
  1. THALOMID [Suspect]
     Indication: MULTIPLE MYELOMA
     Dosage: 200 MG, 2 IN 1 D, ORAL
     Route: 048
     Dates: start: 20070410, end: 20070730

REACTIONS (5)
  - BALANCE DISORDER [None]
  - CONDITION AGGRAVATED [None]
  - INFECTION [None]
  - MUSCULAR WEAKNESS [None]
  - PNEUMONIA [None]
